FAERS Safety Report 4712311-0 (Version None)
Quarter: 2005Q3

REPORT INFORMATION
  Report Type: 
  Country: None (occurrence: None)
  Receive Date: 20050711
  Receipt Date: 20050624
  Transmission Date: 20060218
  Serious: Yes (Hospitalization)
  Sender: FDA-Public Use
  Company Number: 2005-0008441

PATIENT
  Age: 64 Year
  Sex: Male
  Weight: 68 kg

DRUGS (10)
  1. EMTRIVA [Suspect]
     Indication: HIV INFECTION
     Dosage: ORAL
     Route: 048
     Dates: start: 20050315
  2. VIREAD [Suspect]
     Indication: HIV INFECTION
     Dosage: ORAL
     Route: 048
     Dates: start: 20050315, end: 20050525
  3. NORVIR [Concomitant]
  4. REYATAZ [Concomitant]
  5. LASIX [Concomitant]
  6. ALDACTONE [Concomitant]
  7. FENOFIBRATE [Concomitant]
  8. APROVEL (IRBESARTAN) [Concomitant]
  9. VINCRISTINE [Concomitant]
  10. POTASSIUM CHLORIDE [Concomitant]

REACTIONS (2)
  - FANCONI SYNDROME [None]
  - RENAL FAILURE ACUTE [None]
